FAERS Safety Report 25594673 (Version 2)
Quarter: 2025Q3

REPORT INFORMATION
  Report Type: Spontaneous
  Country: ID (occurrence: ID)
  Receive Date: 20250723
  Receipt Date: 20250802
  Transmission Date: 20251020
  Serious: Yes (Death, Life-Threatening, Hospitalization, Other)
  Sender: AUROBINDO
  Company Number: ID-MLMSERVICE-20250707-PI569065-00214-1

PATIENT
  Age: 5 Year
  Sex: Male

DRUGS (20)
  1. PHENYTOIN [Suspect]
     Active Substance: PHENYTOIN
     Indication: Product used for unknown indication
     Route: 065
  2. MEROPENEM [Suspect]
     Active Substance: MEROPENEM
     Indication: Product used for unknown indication
     Route: 065
  3. AMIKACIN [Suspect]
     Active Substance: AMIKACIN
     Indication: Bronchiolitis
     Route: 042
  4. AMIKACIN [Suspect]
     Active Substance: AMIKACIN
     Indication: Pseudomonas infection
  5. AMIKACIN [Suspect]
     Active Substance: AMIKACIN
     Indication: Acinetobacter infection
  6. CIPROFLOXACIN [Suspect]
     Active Substance: CIPROFLOXACIN
     Indication: Obliterative bronchiolitis
     Route: 042
  7. CIPROFLOXACIN [Suspect]
     Active Substance: CIPROFLOXACIN
     Indication: Pseudomonas infection
  8. CIPROFLOXACIN [Suspect]
     Active Substance: CIPROFLOXACIN
     Indication: Acinetobacter infection
  9. DEXAMETHASONE [Suspect]
     Active Substance: DEXAMETHASONE
     Indication: Obliterative bronchiolitis
     Route: 042
  10. DEXAMETHASONE [Suspect]
     Active Substance: DEXAMETHASONE
     Indication: Pseudomonas infection
  11. DEXAMETHASONE [Suspect]
     Active Substance: DEXAMETHASONE
     Indication: Acinetobacter infection
  12. ALBUTEROL [Suspect]
     Active Substance: ALBUTEROL
     Indication: Bronchiolitis
     Dosage: 2.5 MILLIGRAM, FOUR TIMES/DAY
     Route: 065
  13. ALBUTEROL [Suspect]
     Active Substance: ALBUTEROL
     Indication: Pseudomonas infection
  14. ALBUTEROL [Suspect]
     Active Substance: ALBUTEROL
     Indication: Acinetobacter infection
  15. IPRATROPIUM BROMIDE [Suspect]
     Active Substance: IPRATROPIUM BROMIDE
     Indication: Bronchiolitis
     Route: 065
  16. IPRATROPIUM BROMIDE [Suspect]
     Active Substance: IPRATROPIUM BROMIDE
     Indication: Pseudomonas infection
  17. IPRATROPIUM BROMIDE [Suspect]
     Active Substance: IPRATROPIUM BROMIDE
     Indication: Acinetobacter infection
  18. BUDESONIDE [Suspect]
     Active Substance: BUDESONIDE
     Indication: Obliterative bronchiolitis
     Route: 065
  19. BUDESONIDE [Suspect]
     Active Substance: BUDESONIDE
     Indication: Pseudomonas infection
  20. BUDESONIDE [Suspect]
     Active Substance: BUDESONIDE
     Indication: Acinetobacter infection

REACTIONS (9)
  - Stevens-Johnson syndrome [Fatal]
  - Obliterative bronchiolitis [Fatal]
  - Respiratory failure [Fatal]
  - Pseudomonas infection [Fatal]
  - Acinetobacter infection [Fatal]
  - Bacterial infection [Fatal]
  - Hypokalaemia [Fatal]
  - Febrile convulsion [Fatal]
  - Hypochloraemia [Fatal]
